FAERS Safety Report 10984750 (Version 1)
Quarter: 2015Q2

REPORT INFORMATION
  Report Type: Spontaneous
  Country: SE (occurrence: SE)
  Receive Date: 20150403
  Receipt Date: 20150403
  Transmission Date: 20150821
  Serious: Yes (Life-Threatening, Hospitalization)
  Sender: FDA-Public Use
  Company Number: SE-PFIZER INC-2015114457

PATIENT
  Age: 86 Year
  Sex: Female

DRUGS (16)
  1. BEHEPAN [Concomitant]
     Active Substance: HYDROXOCOBALAMIN
  2. OMEPRAZOL PENSA [Suspect]
     Active Substance: OMEPRAZOLE MAGNESIUM
     Dosage: 20 MG, 1X/DAY
     Route: 048
     Dates: end: 20150320
  3. PREDNISOLON PFIZER [Concomitant]
     Active Substance: PREDNISOLONE
  4. ALENDRONAT ORIFARM [Concomitant]
  5. METOTAB [Suspect]
     Active Substance: METHOTREXATE SODIUM
     Dosage: 10 MG, WEEKLY
     Route: 048
     Dates: start: 20150119, end: 20150226
  6. CALCICHEW-D3 [Concomitant]
     Active Substance: CALCIUM\CHOLECALCIFEROL
     Dosage: UNK
  7. LYRICA [Suspect]
     Active Substance: PREGABALIN
     Indication: ANALGESIC THERAPY
     Dosage: 25 MG, 2X/DAY
     Route: 048
  8. LYRICA [Suspect]
     Active Substance: PREGABALIN
     Dosage: 25 MG, 3X/DAY
     Route: 048
     Dates: start: 20150311, end: 20150320
  9. ATENOLOL MYLAN [Concomitant]
     Active Substance: ATENOLOL
  10. AMLODIPIN SANDOZ [Concomitant]
  11. OXASCAND [Concomitant]
     Active Substance: OXAZEPAM
  12. LEVAXIN [Concomitant]
     Active Substance: LEVOTHYROXINE SODIUM
  13. MIRTAZAPIN ACTAVIS [Suspect]
     Active Substance: MIRTAZAPINE
     Dosage: 15 MG, 1X/DAY
     Route: 048
     Dates: end: 20150320
  14. FINACEA [Concomitant]
     Active Substance: AZELAIC ACID
  15. MOVICOL [Concomitant]
     Active Substance: POLYETHYLENE GLYCOL 3350\POTASSIUM CHLORIDE\SODIUM BICARBONATE\SODIUM CHLORIDE
  16. CIPROFLOXACIN. [Concomitant]
     Active Substance: CIPROFLOXACIN

REACTIONS (1)
  - Hyponatraemia [Recovered/Resolved]

NARRATIVE: CASE EVENT DATE: 20150320
